FAERS Safety Report 9476716 (Version 2)
Quarter: 2013Q3

REPORT INFORMATION
  Report Type: Spontaneous
  Country: US (occurrence: US)
  Receive Date: 20130826
  Receipt Date: 20130826
  Transmission Date: 20140515
  Serious: No
  Sender: FDA-Public Use
  Company Number: US-BRISTOL-MYERS SQUIBB COMPANY-17045642

PATIENT
  Age: 87 Year
  Sex: Female

DRUGS (1)
  1. KENALOG-40 INJ [Suspect]
     Indication: BACK PAIN
     Dates: start: 20121009

REACTIONS (5)
  - Blood glucose increased [Recovering/Resolving]
  - Chills [Unknown]
  - Diarrhoea [Unknown]
  - Fatigue [Unknown]
  - Drug administration error [Unknown]
